FAERS Safety Report 20840566 (Version 1)
Quarter: 2022Q2

REPORT INFORMATION
  Report Type: Spontaneous
  Country: US (occurrence: US)
  Receive Date: 20220517
  Receipt Date: 20220517
  Transmission Date: 20220721
  Serious: No
  Sender: FDA-Public Use
  Company Number: US-PFIZER INC-202200521135

PATIENT
  Age: 20 Year
  Sex: Female
  Weight: 58.97 kg

DRUGS (2)
  1. XELJANZ [Suspect]
     Active Substance: TOFACITINIB CITRATE
     Indication: Colitis ulcerative
     Dosage: UNK
     Dates: end: 20220331
  2. MESALAMINE [Concomitant]
     Active Substance: MESALAMINE
     Indication: Nausea
     Dosage: UNK
     Dates: start: 2021

REACTIONS (1)
  - Malaise [Unknown]

NARRATIVE: CASE EVENT DATE: 20220101
